FAERS Safety Report 4449612-X (Version None)
Quarter: 2004Q3

REPORT INFORMATION
  Report Type: 
  Country: None (occurrence: None)
  Receive Date: 20040913
  Receipt Date: 20040913
  Transmission Date: 20050211
  Serious: Yes (Life-Threatening)
  Sender: FDA-Public Use
  Company Number: None

PATIENT
  Age: 82 Year
  Sex: Male
  Weight: 70.1715 kg

DRUGS (8)
  1. TEQUIN [Suspect]
     Indication: ESCHERICHIA BACTERAEMIA
     Dosage: 400 MG QD IV
     Route: 042
     Dates: start: 20040711
  2. TEQUIN [Suspect]
     Indication: URINARY TRACT INFECTION
     Dosage: 400 MG QD IV
     Route: 042
     Dates: start: 20040711
  3. ASPIRIN [Concomitant]
  4. CELEBREX [Concomitant]
  5. COUMADIN [Concomitant]
  6. ATENOLOL [Concomitant]
  7. TRIAMTERENE [Concomitant]
  8. ZOCOR [Concomitant]

REACTIONS (6)
  - ATRIAL FIBRILLATION [None]
  - BLOOD CREATININE INCREASED [None]
  - BLOOD GLUCOSE INCREASED [None]
  - CHILLS [None]
  - TORSADE DE POINTES [None]
  - VOMITING [None]
